FAERS Safety Report 5254344-4 (Version None)
Quarter: 2007Q1

REPORT INFORMATION
  Report Type: 
  Country: None (occurrence: None)
  Receive Date: 20070302
  Receipt Date: 20070222
  Transmission Date: 20070707
  Serious: Yes (Other)
  Sender: FDA-Public Use
  Company Number: CA-JNJFOC-20070205451

PATIENT
  Age: 70 Year
  Sex: Male
  Weight: 88.45 kg

DRUGS (2)
  1. REGRANEX [Suspect]
     Indication: DIABETIC ULCER
     Route: 061
  2. EPREX [Concomitant]
     Indication: NEPHROGENIC ANAEMIA
     Route: 065

REACTIONS (1)
  - SKIN ULCER [None]
